FAERS Safety Report 14435651 (Version 2)
Quarter: 2018Q4

REPORT INFORMATION
  Report Type: Spontaneous
  Country: FR (occurrence: FR)
  Receive Date: 20180125
  Receipt Date: 20181023
  Transmission Date: 20190204
  Serious: Yes (Disabling)
  Sender: FDA-Public Use
  Company Number: FR-MERCK KGAA-2040770

PATIENT
  Sex: Female

DRUGS (2)
  1. EUTHYROX [Suspect]
     Active Substance: LEVOTHYROXINE SODIUM
     Indication: PRODUCT USED FOR UNKNOWN INDICATION
  2. LEVOTHYROX 25 NF [Suspect]
     Active Substance: LEVOTHYROXINE SODIUM

REACTIONS (41)
  - Tinnitus [None]
  - Abdominal pain upper [None]
  - Irritability [None]
  - Phobia [None]
  - Constipation [None]
  - Vertigo [None]
  - Rash [None]
  - Pyrexia [None]
  - Nausea [None]
  - Depressed mood [None]
  - Asthenia [None]
  - Psychiatric symptom [None]
  - Headache [None]
  - Insomnia [None]
  - Mood swings [None]
  - Affect lability [None]
  - Bulimia nervosa [None]
  - Loss of libido [None]
  - Decreased appetite [None]
  - Burning sensation [None]
  - Muscular weakness [None]
  - Hot flush [None]
  - Tearfulness [None]
  - Fatigue [None]
  - Bedridden [None]
  - Disturbance in attention [None]
  - Somnolence [None]
  - Nervousness [None]
  - Diarrhoea [None]
  - Tremor [None]
  - Vomiting [None]
  - Memory impairment [None]
  - Personal relationship issue [None]
  - Face oedema [None]
  - Communication disorder [None]
  - Abdominal pain [None]
  - Feeling guilty [None]
  - Ageusia [None]
  - Pain [None]
  - Menstruation irregular [None]
  - Loss of personal independence in daily activities [None]
